FAERS Safety Report 7875876-6 (Version None)
Quarter: 2011Q4

REPORT INFORMATION
  Report Type: 
  Country: None (occurrence: None)
  Receive Date: 20111031
  Receipt Date: 20111024
  Transmission Date: 20120403
  Serious: Yes (Other)
  Sender: FDA-Public Use
  Company Number: CA-BAYER-2011-103372

PATIENT
  Sex: Female

DRUGS (1)
  1. BETASERON [Suspect]
     Dosage: UNK
     Route: 058
     Dates: end: 20110601

REACTIONS (5)
  - VISUAL IMPAIRMENT [None]
  - CYSTITIS [None]
  - ARTHRITIS [None]
  - TREMOR [None]
  - HEARING IMPAIRED [None]
